FAERS Safety Report 5324025-7 (Version None)
Quarter: 2007Q2

REPORT INFORMATION
  Report Type: 
  Country: None (occurrence: None)
  Receive Date: 20070514
  Receipt Date: 20070430
  Transmission Date: 20071010
  Serious: Yes (Hospitalization)
  Sender: FDA-Public Use
  Company Number: DE-ELI_LILLY_AND_COMPANY-DE200702001788

PATIENT
  Sex: Female
  Weight: 70 kg

DRUGS (4)
  1. GEMCITABINE HCL [Suspect]
     Indication: BREAST CANCER
     Dosage: 1830 MG, UNK
     Route: 042
     Dates: start: 20070129
  2. *DOCETAXEL [Suspect]
     Indication: BREAST CANCER
     Dosage: 140 MG, UNK
     Route: 042
     Dates: start: 20070129
  3. FORTECORTIN [Concomitant]
     Indication: PROPHYLAXIS OF NAUSEA AND VOMITING
     Dosage: 18 MG, UNK
     Route: 048
     Dates: start: 20070128, end: 20070130
  4. NAVOBAN [Concomitant]
     Indication: PROPHYLAXIS OF NAUSEA AND VOMITING
     Dosage: 5 MG, UNK
     Route: 042
     Dates: start: 20070129, end: 20070129

REACTIONS (2)
  - ENDOCARDITIS [None]
  - FEBRILE NEUTROPENIA [None]
